FAERS Safety Report 4645943-9 (Version None)
Quarter: 2005Q2

REPORT INFORMATION
  Report Type: 
  Country: None (occurrence: None)
  Receive Date: 20050422
  Receipt Date: 20050422
  Transmission Date: 20051028
  Serious: Yes (Hospitalization)
  Sender: FDA-Public Use
  Company Number: None

PATIENT
  Age: 75 Year
  Sex: Female

DRUGS (2)
  1. VALPROIC ACID [Suspect]
     Indication: BIPOLAR I DISORDER
     Dosage: 250MG PO BID
     Route: 048
  2. HYZAAR [Suspect]
     Indication: HYPERTENSION
     Dosage: 50/12.5 PO QD
     Route: 048

REACTIONS (4)
  - DIARRHOEA [None]
  - HYPONATRAEMIA [None]
  - NAUSEA [None]
  - VOMITING [None]
